FAERS Safety Report 23592172 (Version 1)
Quarter: 2024Q1

REPORT INFORMATION
  Report Type: Spontaneous
  Country: US (occurrence: None)
  Receive Date: 20240302
  Receipt Date: 20240302
  Transmission Date: 20240410
  Serious: No
  Sender: FDA-Public Use
  Company Number: None

PATIENT
  Age: 47 Year
  Sex: Female
  Weight: 91.8 kg

DRUGS (10)
  1. ZEPBOUND [Suspect]
     Active Substance: TIRZEPATIDE
     Indication: Weight decreased
     Dosage: 1 INJECTION  ONCE WEEKLY SUBCUTANEOUS
     Route: 058
  2. LISINOPRIL [Concomitant]
     Active Substance: LISINOPRIL
  3. PROPRANOLOL [Concomitant]
     Active Substance: PROPRANOLOL HYDROCHLORIDE
  4. ELIQUIS [Concomitant]
     Active Substance: APIXABAN
  5. NURTEC ODT [Concomitant]
     Active Substance: RIMEGEPANT SULFATE
  6. ONDANSETRON [Concomitant]
     Active Substance: ONDANSETRON
  7. DICYCLOMINE [Concomitant]
     Active Substance: DICYCLOMINE HYDROCHLORIDE
  8. VITAMINS [Concomitant]
     Active Substance: VITAMINS
  9. PEPTO-BISMOL [Concomitant]
     Active Substance: BISMUTH SUBSALICYLATE
  10. IMODIUM [Concomitant]
     Active Substance: LOPERAMIDE HYDROCHLORIDE

REACTIONS (12)
  - Nausea [None]
  - Abdominal pain [None]
  - Constipation [None]
  - Vomiting [None]
  - Hypophagia [None]
  - Dehydration [None]
  - Therapy cessation [None]
  - Loss of personal independence in daily activities [None]
  - Fatigue [None]
  - Mental fatigue [None]
  - Impaired work ability [None]
  - Product communication issue [None]

NARRATIVE: CASE EVENT DATE: 20240126
